FAERS Safety Report 5853331-2 (Version None)
Quarter: 2008Q3

REPORT INFORMATION
  Report Type: 
  Country: None (occurrence: None)
  Receive Date: 20080821
  Receipt Date: 20080809
  Transmission Date: 20090109
  Serious: Yes (Other)
  Sender: FDA-Public Use
  Company Number: US-PFIZER INC-2008067280

PATIENT
  Sex: Female
  Weight: 81.6 kg

DRUGS (8)
  1. CHANTIX [Suspect]
     Indication: SMOKING CESSATION THERAPY
  2. ALBUTEROL [Concomitant]
  3. FLOVENT [Concomitant]
  4. ATROVENT [Concomitant]
  5. NEXIUM [Concomitant]
  6. LEVOTHYROXINE SODIUM [Concomitant]
  7. LOMOTIL [Concomitant]
  8. ASACOL [Concomitant]
     Indication: COLITIS ULCERATIVE

REACTIONS (8)
  - BALANCE DISORDER [None]
  - DISORIENTATION [None]
  - IMPAIRED DRIVING ABILITY [None]
  - NEPHROLITHIASIS [None]
  - READING DISORDER [None]
  - SKIN REACTION [None]
  - URINARY TRACT INFECTION [None]
  - URINE ANALYSIS ABNORMAL [None]
